FAERS Safety Report 18934991 (Version 2)
Quarter: 2023Q1

REPORT INFORMATION
  Report Type: Report from Study
  Country: US (occurrence: US)
  Receive Date: 20210224
  Receipt Date: 20230203
  Transmission Date: 20230418
  Serious: Yes (Other)
  Sender: FDA-Public Use
  Company Number: US-TAKEDA-US201831130

PATIENT
  Sex: Female

DRUGS (1)
  1. HUMAN IMMUNOGLOBULIN G [Suspect]
     Active Substance: HUMAN IMMUNOGLOBULIN G
     Indication: Primary immunodeficiency syndrome
     Dosage: UNK UNK, Q4WEEKS
     Route: 042

REACTIONS (6)
  - Lung carcinoma cell type unspecified stage I [Unknown]
  - Vocal cord paralysis [Unknown]
  - Neck injury [Unknown]
  - Illness [Unknown]
  - Wheezing [Unknown]
  - Fall [Unknown]
